FAERS Safety Report 25571112 (Version 4)
Quarter: 2025Q3

REPORT INFORMATION
  Report Type: Spontaneous
  Country: GB (occurrence: GB)
  Receive Date: 20250717
  Receipt Date: 20250819
  Transmission Date: 20251020
  Serious: Yes (Life-Threatening)
  Sender: ROCHE
  Company Number: GB-ROCHE-10000338916

PATIENT
  Age: 9 Year
  Sex: Male
  Weight: 36 kg

DRUGS (3)
  1. HEMLIBRA [Suspect]
     Active Substance: EMICIZUMAB-KXWH
     Indication: Factor VIII deficiency
     Dosage: ON 24-MAR-2025, LATEST SUSPECT DRUG ADMINISTRATION, IN RELATION TO THE ONSET OF THE EVENT
     Route: 058
     Dates: start: 20200130
  2. HEMLIBRA [Suspect]
     Active Substance: EMICIZUMAB-KXWH
     Route: 058
  3. LAMICTAL [Concomitant]
     Active Substance: LAMOTRIGINE
     Dosage: FORM: DISPERSIBLE TABLETS

REACTIONS (1)
  - Seizure [Recovered/Resolved]

NARRATIVE: CASE EVENT DATE: 20250404
